FAERS Safety Report 17141699 (Version 3)
Quarter: 2020Q3

REPORT INFORMATION
  Report Type: Spontaneous
  Country: US (occurrence: US)
  Receive Date: 20191211
  Receipt Date: 20200729
  Transmission Date: 20201102
  Serious: No
  Sender: FDA-Public Use
  Company Number: US-SA-2019SA340358

PATIENT

DRUGS (1)
  1. DUPIXENT [Suspect]
     Active Substance: DUPILUMAB
     Dosage: 300 MG, QOW
     Route: 058
     Dates: start: 201905

REACTIONS (3)
  - Nasopharyngitis [Unknown]
  - Pruritus [Unknown]
  - Ankle fracture [Unknown]

NARRATIVE: CASE EVENT DATE: 2019
